FAERS Safety Report 20851991 (Version 1)
Quarter: 2022Q2

REPORT INFORMATION
  Report Type: Report from Study
  Country: CA (occurrence: CA)
  Receive Date: 20220520
  Receipt Date: 20220520
  Transmission Date: 20220720
  Serious: Yes (Other)
  Sender: FDA-Public Use
  Company Number: CA-JNJFOC-20220534792

PATIENT
  Sex: Female

DRUGS (2)
  1. REMICADE [Suspect]
     Active Substance: INFLIXIMAB
     Indication: Crohn^s disease
     Route: 042
  2. AMOXICILLIN [Concomitant]
     Active Substance: AMOXICILLIN
     Indication: Premedication
     Dosage: PATIENT CURRENTLY ON AMOXICILLIN FOR A ROOT CANAL THAT IS HAVING FIXED AT THE DENTIST ON 18-MAY-2022
     Route: 065
     Dates: start: 202205

REACTIONS (1)
  - Skin cancer [Unknown]
